FAERS Safety Report 4331163-4 (Version None)
Quarter: 2004Q1

REPORT INFORMATION
  Report Type: 
  Country: None (occurrence: None)
  Receive Date: 20040331
  Receipt Date: 20040317
  Transmission Date: 20041129
  Serious: Yes (Disabling, Other)
  Sender: FDA-Public Use
  Company Number: 2004018668

PATIENT
  Age: 46 Year
  Sex: Male

DRUGS (2)
  1. LIPITOR [Suspect]
     Indication: HYPERCHOLESTEROLAEMIA
     Dosage: 10 MG (DAILY), ORAL
     Route: 048
     Dates: start: 20021101, end: 20030131
  2. BISOPROLOL FUMARATE [Concomitant]

REACTIONS (3)
  - NEUROPATHY [None]
  - PAIN [None]
  - PERONEAL NERVE PALSY [None]
